FAERS Safety Report 7059930-7 (Version None)
Quarter: 2010Q4

REPORT INFORMATION
  Report Type: 
  Country: None (occurrence: None)
  Receive Date: 20101019
  Receipt Date: 20101013
  Transmission Date: 20110411
  Serious: Yes (Hospitalization)
  Sender: FDA-Public Use
  Company Number: 2010SP054536

PATIENT
  Age: 40 Year
  Sex: Female

DRUGS (3)
  1. MARVELON (DESOGESTREL/ETHINYLESTRADIOL /00570801/) [Suspect]
     Indication: DYSMENORRHOEA
     Dosage: 1 DF; QD; PO
     Route: 048
     Dates: start: 20100623, end: 20100906
  2. LOXONIN [Concomitant]
  3. DUVADILAN [Concomitant]

REACTIONS (6)
  - BACK PAIN [None]
  - DEEP VEIN THROMBOSIS [None]
  - PAIN IN EXTREMITY [None]
  - PULMONARY INFARCTION [None]
  - PULMONARY THROMBOSIS [None]
  - SWELLING FACE [None]
